FAERS Safety Report 10047083 (Version 1)
Quarter: 2014Q1

REPORT INFORMATION
  Report Type: Spontaneous
  Country: US (occurrence: US)
  Receive Date: 20140331
  Receipt Date: 20140331
  Transmission Date: 20141002
  Serious: No
  Sender: FDA-Public Use
  Company Number: US-MYLANLABS-2013S1006277

PATIENT
  Sex: Male

DRUGS (2)
  1. FENTANYL TRANSDERMAL SYSTEM [Suspect]
     Indication: MUSCULOSKELETAL PAIN
     Dosage: Q 72
     Route: 062
     Dates: start: 20130318, end: 20130319
  2. PERCOCET [Concomitant]
     Indication: MUSCULOSKELETAL PAIN

REACTIONS (3)
  - Vomiting [Recovering/Resolving]
  - Dizziness [Recovering/Resolving]
  - Incorrect dose administered [Recovered/Resolved]
